FAERS Safety Report 6538760-6 (Version None)
Quarter: 2010Q1

REPORT INFORMATION
  Report Type: 
  Country: None (occurrence: None)
  Receive Date: 20100114
  Receipt Date: 20100114
  Transmission Date: 20100710
  Serious: No
  Sender: FDA-Public Use
  Company Number: None

PATIENT
  Age: 57 Year
  Sex: Female
  Weight: 65.7716 kg

DRUGS (1)
  1. ATENOLOL [Suspect]
     Indication: OSTEOPENIA
     Dosage: 1 1 PO ONCE
     Route: 048
     Dates: start: 20100111, end: 20100111

REACTIONS (7)
  - ARTHRALGIA [None]
  - CHEST PAIN [None]
  - FEELING ABNORMAL [None]
  - INSOMNIA [None]
  - MUSCULOSKELETAL CHEST PAIN [None]
  - MUSCULOSKELETAL DISCOMFORT [None]
  - MYALGIA [None]
